FAERS Safety Report 15028994 (Version 1)
Quarter: 2018Q2

REPORT INFORMATION
  Report Type: Spontaneous
  Country: US (occurrence: US)
  Receive Date: 20180529
  Receipt Date: 20180529
  Transmission Date: 20180711
  Serious: No
  Sender: FDA-Public Use
  Company Number: None

PATIENT
  Age: 71 Year
  Sex: Male
  Weight: 99.79 kg

DRUGS (7)
  1. LEVOTHYROXINE. [Concomitant]
     Active Substance: LEVOTHYROXINE
  2. PIOGLITAZONE HCL [Concomitant]
     Active Substance: PIOGLITAZONE
  3. AMLODIPINE/BENAZERIL [Concomitant]
  4. XARELTO [Suspect]
     Active Substance: RIVAROXABAN
     Indication: ANTICOAGULANT THERAPY
     Dosage: ?          QUANTITY:1 DF DOSAGE FORM;OTHER ROUTE:WITH EVENING MEAL?
     Dates: start: 20180306, end: 20180506
  5. VALSARTAN. [Concomitant]
     Active Substance: VALSARTAN
  6. ROSUVASTATIN. [Concomitant]
     Active Substance: ROSUVASTATIN
  7. AMIODARONE HCL [Concomitant]
     Active Substance: AMIODARONE HYDROCHLORIDE

REACTIONS (1)
  - Neck pain [None]

NARRATIVE: CASE EVENT DATE: 20180306
